FAERS Safety Report 4588515-7 (Version None)
Quarter: 2005Q1

REPORT INFORMATION
  Report Type: 
  Country: None (occurrence: None)
  Receive Date: 20050216
  Receipt Date: 20050216
  Transmission Date: 20050727
  Serious: Yes (Other)
  Sender: FDA-Public Use
  Company Number: None

PATIENT
  Age: 74 Year
  Sex: Male
  Weight: 77.1115 kg

DRUGS (1)
  1. FLOMAX [Suspect]
     Indication: BENIGN PROSTATIC HYPERPLASIA
     Dosage: ONE TABLET   DAILY   ORAL
     Route: 048
     Dates: start: 20040101, end: 20050215

REACTIONS (6)
  - IRIS ADHESIONS [None]
  - IRIS DISORDER [None]
  - MIOSIS [None]
  - POST PROCEDURAL COMPLICATION [None]
  - PROCEDURAL COMPLICATION [None]
  - THERAPY NON-RESPONDER [None]
